FAERS Safety Report 21541870 (Version 1)
Quarter: 2022Q4

REPORT INFORMATION
  Report Type: Spontaneous
  Country: CN (occurrence: CN)
  Receive Date: 20221102
  Receipt Date: 20221102
  Transmission Date: 20230113
  Serious: Yes (Other)
  Sender: FDA-Public Use
  Company Number: None

PATIENT
  Age: 61 Year
  Sex: Female
  Weight: 71.5 kg

DRUGS (7)
  1. CYCLOPHOSPHAMIDE [Suspect]
     Active Substance: CYCLOPHOSPHAMIDE
     Indication: Breast cancer female
     Dosage: 850 MG, QD, POWDER INJECTION, DILUTED WITH NS (45 ML), FIRST CYCLE OF CHEMOTHERAPY
     Route: 042
     Dates: start: 20220912, end: 20220912
  2. CYCLOPHOSPHAMIDE [Suspect]
     Active Substance: CYCLOPHOSPHAMIDE
     Indication: Chemotherapy
  3. SODIUM CHLORIDE [Suspect]
     Active Substance: SODIUM CHLORIDE
     Indication: Medication dilution
     Dosage: 45 ML, QD (USED TO DILUTE CYCLOPHOSPHAMIDE (850 MG), FIRST CYCLE OF CHEMOTHERAPY
     Route: 042
     Dates: start: 20220912, end: 20220912
  4. SODIUM CHLORIDE [Suspect]
     Active Substance: SODIUM CHLORIDE
     Dosage: 100 ML, QD (USED TO DILUTE PHARMORUBICIN (110 MG), FIRST CYCLE OF CHEMOTHERAPY
     Route: 041
     Dates: start: 20220912, end: 20220912
  5. EPIRUBICIN [Suspect]
     Active Substance: EPIRUBICIN
     Indication: Breast cancer female
     Dosage: 110 MG, QD, DILUTED WITH NS (100 ML), FIRST CYCLE OF CHEMOTHERAPY
     Route: 041
     Dates: start: 20220912, end: 20220912
  6. EPIRUBICIN [Suspect]
     Active Substance: EPIRUBICIN
     Indication: Chemotherapy
  7. Jin you li [Concomitant]
     Indication: Product used for unknown indication
     Dosage: 3 MG
     Route: 058
     Dates: start: 20220913

REACTIONS (2)
  - White blood cell count decreased [Recovered/Resolved]
  - Agranulocytosis [Recovered/Resolved]

NARRATIVE: CASE EVENT DATE: 20220919
